FAERS Safety Report 13951042 (Version 1)
Quarter: 2017Q3

REPORT INFORMATION
  Report Type: Report from Study
  Country: None (occurrence: BR)
  Receive Date: 20170908
  Receipt Date: 20170908
  Transmission Date: 20171128
  Serious: Yes (Other)
  Sender: FDA-Public Use
  Company Number: BR-ABBVIE-17P-020-1859757-00

PATIENT
  Sex: Female
  Weight: 61 kg

DRUGS (1)
  1. SYNTHROID [Suspect]
     Active Substance: LEVOTHYROXINE SODIUM
     Indication: BLOOD THYROID STIMULATING HORMONE ABNORMAL
     Dosage: DAILY DOSE: ^1^
     Route: 048
     Dates: start: 201612, end: 201706

REACTIONS (2)
  - Maternal exposure during pregnancy [Unknown]
  - Oligohydramnios [Unknown]
